FAERS Safety Report 18540679 (Version 2)
Quarter: 2020Q4

REPORT INFORMATION
  Report Type: Spontaneous
  Country: US (occurrence: US)
  Receive Date: 20201124
  Receipt Date: 20201229
  Transmission Date: 20210114
  Serious: No
  Sender: FDA-Public Use
  Company Number: US-PFIZER INC-2017346151

PATIENT
  Age: 11 Year
  Sex: Male
  Weight: 56.7 kg

DRUGS (3)
  1. GENOTROPIN [Suspect]
     Active Substance: SOMATROPIN
     Dosage: 4 MG, 1X/DAY
     Dates: start: 2017
  2. GENOTROPIN [Suspect]
     Active Substance: SOMATROPIN
     Indication: GROWTH HORMONE DEFICIENCY
     Dosage: 2.0 MG, DAILY
     Dates: start: 20170411
  3. GENOTROPIN [Suspect]
     Active Substance: SOMATROPIN
     Dosage: 5 MG, DAILY
     Dates: start: 20170411

REACTIONS (6)
  - Drug ineffective [Unknown]
  - Device issue [Unknown]
  - Incorrect dose administered [Unknown]
  - Drug dose omission by device [Unknown]
  - Product quality issue [Unknown]
  - Device use issue [Unknown]
